FAERS Safety Report 23381921 (Version 2)
Quarter: 2024Q1

REPORT INFORMATION
  Report Type: Spontaneous
  Country: US (occurrence: US)
  Receive Date: 20240109
  Receipt Date: 20240229
  Transmission Date: 20240410
  Serious: Yes (Death, Hospitalization)
  Sender: FDA-Public Use
  Company Number: US-BAYER-2024A002296

PATIENT
  Age: 87 Year
  Sex: Male

DRUGS (4)
  1. ASPIRIN [Suspect]
     Active Substance: ASPIRIN
     Route: 048
  2. ACETAMINOPHEN [Suspect]
     Active Substance: ACETAMINOPHEN
  3. ETHYLENE GLYCOL [Suspect]
     Active Substance: ETHYLENE GLYCOL
  4. ALCOHOL [Suspect]
     Active Substance: ALCOHOL

REACTIONS (1)
  - Toxicity to various agents [Fatal]
